FAERS Safety Report 9749299 (Version 2)
Quarter: 2013Q4

REPORT INFORMATION
  Report Type: Spontaneous
  Country: GB (occurrence: GB)
  Receive Date: 20131212
  Receipt Date: 20131212
  Transmission Date: 20140711
  Serious: Yes (Death, Other)
  Sender: FDA-Public Use
  Company Number: GB-ACTAVIS-2013-05099

PATIENT
  Age: 98 Year
  Sex: Male
  Weight: 76 kg

DRUGS (6)
  1. SPIRONOLACTONE (UNKNOWN) [Suspect]
     Indication: PRODUCT USED FOR UNKNOWN INDICATION
     Dosage: HALF DOSE
     Route: 048
     Dates: start: 20130115, end: 20130205
  2. SPIRONOLACTONE (UNKNOWN) [Suspect]
     Dosage: UNK
     Route: 048
     Dates: start: 201212, end: 201212
  3. BISOPROLOL [Concomitant]
     Indication: PRODUCT USED FOR UNKNOWN INDICATION
     Dosage: 10 MG, DAILY
     Route: 065
  4. LISINOPRIL [Concomitant]
     Indication: PRODUCT USED FOR UNKNOWN INDICATION
     Dosage: UNK
     Route: 065
  5. ASPIRIN [Concomitant]
     Indication: PRODUCT USED FOR UNKNOWN INDICATION
     Dosage: UNK
     Route: 065
  6. FUROSEMIDE [Concomitant]
     Indication: PRODUCT USED FOR UNKNOWN INDICATION
     Dosage: 40 MG, DAILY
     Route: 065

REACTIONS (8)
  - Myocardial infarction [Fatal]
  - Oedema peripheral [Not Recovered/Not Resolved]
  - Condition aggravated [Unknown]
  - Somnolence [Unknown]
  - Dyspnoea [Unknown]
  - Tremor [Unknown]
  - Confusional state [Unknown]
  - Medication error [Unknown]
